FAERS Safety Report 6269734-0 (Version None)
Quarter: 2009Q3

REPORT INFORMATION
  Report Type: 
  Country: None (occurrence: None)
  Receive Date: 20090716
  Receipt Date: 20090715
  Transmission Date: 20100115
  Serious: Yes (Hospitalization)
  Sender: FDA-Public Use
  Company Number: ES-WYE-G01241508

PATIENT
  Age: 39 Year
  Sex: Male

DRUGS (3)
  1. ORFIDAL [Suspect]
     Indication: ANXIETY
     Route: 048
     Dates: start: 20070507, end: 20070517
  2. VENLAFAXINE HCL [Suspect]
     Indication: ANXIETY
     Route: 048
     Dates: start: 20070507, end: 20070517
  3. TRANKIMAZIN [Suspect]
     Indication: ANXIETY
     Route: 048
     Dates: start: 20070507, end: 20070517

REACTIONS (1)
  - HEPATITIS CHOLESTATIC [None]
